FAERS Safety Report 4742594-2 (Version None)
Quarter: 2005Q3

REPORT INFORMATION
  Report Type: 
  Country: None (occurrence: None)
  Receive Date: 20050811
  Receipt Date: 20050803
  Transmission Date: 20060218
  Serious: Yes (Other)
  Sender: FDA-Public Use
  Company Number: PHBS2005AR11239

PATIENT
  Age: 69 Year
  Sex: Female

DRUGS (2)
  1. ZELMAC [Suspect]
     Indication: CONSTIPATION
     Dosage: 6 MG, BID
  2. SIMVASTATIN [Concomitant]

REACTIONS (1)
  - RECTAL HAEMORRHAGE [None]
